FAERS Safety Report 12608390 (Version 3)
Quarter: 2016Q3

REPORT INFORMATION
  Report Type: Report from Study
  Country: AU (occurrence: AU)
  Receive Date: 20160729
  Receipt Date: 20160819
  Transmission Date: 20161109
  Serious: Yes (Hospitalization)
  Sender: FDA-Public Use
  Company Number: AU-SA-2016SA133644

PATIENT
  Age: 52 Year
  Sex: Female
  Weight: 62.3 kg

DRUGS (10)
  1. PARACETAMOL [Concomitant]
     Active Substance: ACETAMINOPHEN
     Indication: DRUG THERAPY
     Route: 048
     Dates: start: 20000101
  2. THYROXIN [Concomitant]
     Active Substance: LEVOTHYROXINE
     Indication: DRUG THERAPY
     Route: 048
     Dates: start: 20130824
  3. ENDONE [Concomitant]
     Active Substance: OXYCODONE HYDROCHLORIDE
     Indication: PROPHYLAXIS
     Route: 048
     Dates: start: 20160410, end: 20160430
  4. IBUPROFEN. [Concomitant]
     Active Substance: IBUPROFEN
     Indication: PROPHYLAXIS
     Route: 048
     Dates: start: 20160410, end: 20160430
  5. CALTRATE [Concomitant]
     Active Substance: CALCIUM CARBONATE
     Indication: DRUG THERAPY
     Route: 048
     Dates: start: 20120922
  6. ALEMTUZUMAB [Suspect]
     Active Substance: ALEMTUZUMAB
     Indication: RELAPSING-REMITTING MULTIPLE SCLEROSIS
     Route: 065
     Dates: start: 20100630, end: 20100702
  7. FAMCICLOVIR. [Concomitant]
     Active Substance: FAMCICLOVIR
     Indication: PROPHYLAXIS
     Route: 048
     Dates: start: 20160410, end: 20160417
  8. ALEMTUZUMAB [Suspect]
     Active Substance: ALEMTUZUMAB
     Indication: RELAPSING-REMITTING MULTIPLE SCLEROSIS
     Dosage: INTENDED DOSE: 60 MG
     Route: 065
     Dates: start: 20090629, end: 20090703
  9. THYROXIN [Concomitant]
     Active Substance: LEVOTHYROXINE
     Indication: DRUG THERAPY
     Route: 048
     Dates: start: 20140126
  10. VITAMIN D/CALCIUM [Concomitant]
     Indication: DRUG THERAPY
     Route: 048
     Dates: start: 20120922

REACTIONS (1)
  - Cellulitis [Recovering/Resolving]

NARRATIVE: CASE EVENT DATE: 20160412
